FAERS Safety Report 6254908-5 (Version None)
Quarter: 2009Q3

REPORT INFORMATION
  Report Type: 
  Country: None (occurrence: None)
  Receive Date: 20090702
  Receipt Date: 20090623
  Transmission Date: 20100115
  Serious: Yes (Hospitalization, Other)
  Sender: FDA-Public Use
  Company Number: FR-PFIZER INC-2009230637

PATIENT
  Age: 59 Year

DRUGS (12)
  1. VFEND [Suspect]
     Dosage: 100 MG, 2X/DAY
     Route: 048
     Dates: start: 20040401, end: 20070824
  2. KALETRA [Concomitant]
     Dosage: UNK
  3. SUSTIVA [Concomitant]
  4. ZIAGEN [Concomitant]
  5. MALOCIDE [Concomitant]
  6. ADIAZINE [Concomitant]
  7. LEDERFOLIN [Concomitant]
  8. ELISOR [Concomitant]
  9. MAXEPA [Concomitant]
  10. ASPEGIC 1000 [Concomitant]
  11. DEDROGYL [Concomitant]
  12. MOPRAL [Concomitant]

REACTIONS (1)
  - SQUAMOUS CELL CARCINOMA [None]
